FAERS Safety Report 13667578 (Version 1)
Quarter: 2017Q2

REPORT INFORMATION
  Report Type: Spontaneous
  Country: US (occurrence: US)
  Receive Date: 20170619
  Receipt Date: 20170619
  Transmission Date: 20170830
  Serious: Yes (Hospitalization)
  Sender: FDA-Public Use
  Company Number: None

PATIENT
  Age: 55 Year
  Sex: Female

DRUGS (1)
  1. INLYTA [Suspect]
     Active Substance: AXITINIB
     Indication: NEOPLASM MALIGNANT
     Dosage: 5MG TAKE 1 TABLET (5MG) BY MOUTH TWICE ORAL
     Route: 048
     Dates: start: 20170413

REACTIONS (2)
  - Constipation [None]
  - Urinary tract infection [None]

NARRATIVE: CASE EVENT DATE: 20170613
